FAERS Safety Report 14766879 (Version 1)
Quarter: 2018Q2

REPORT INFORMATION
  Report Type: Spontaneous
  Country: US (occurrence: US)
  Receive Date: 20180417
  Receipt Date: 20180417
  Transmission Date: 20180711
  Serious: Yes (Other)
  Sender: FDA-Public Use
  Company Number: US-ALVOGEN-2017-ALVOGEN-093844

PATIENT
  Sex: Female

DRUGS (6)
  1. ATENOLOL. [Suspect]
     Active Substance: ATENOLOL
     Indication: CORONARY ARTERY DISEASE
     Route: 048
     Dates: start: 2009, end: 2009
  2. OMEPRAZOLE. [Concomitant]
     Active Substance: OMEPRAZOLE
     Indication: DYSPEPSIA
  3. ATENOLOL. [Suspect]
     Active Substance: ATENOLOL
     Indication: CORONARY ARTERY DISEASE
     Route: 048
     Dates: start: 2009, end: 2009
  4. UBIDECARENONE [Concomitant]
     Active Substance: UBIDECARENONE
     Indication: CORONARY ARTERY DISEASE
  5. ACETYLSALICYLIC ACID [Concomitant]
     Active Substance: ASPIRIN
     Indication: CORONARY ARTERY DISEASE
     Dates: start: 2009
  6. PLAVIX [Concomitant]
     Active Substance: CLOPIDOGREL BISULFATE
     Indication: PRODUCT USED FOR UNKNOWN INDICATION
     Dates: start: 2009, end: 2010

REACTIONS (1)
  - Heart rate decreased [Recovered/Resolved]

NARRATIVE: CASE EVENT DATE: 2009
